FAERS Safety Report 18699970 (Version 1)
Quarter: 2021Q1

REPORT INFORMATION
  Report Type: Spontaneous
  Country: US (occurrence: US)
  Receive Date: 20210104
  Receipt Date: 20210104
  Transmission Date: 20210419
  Serious: Yes (Death, Hospitalization)
  Sender: FDA-Public Use
  Company Number: None

PATIENT
  Age: 73 Year
  Sex: Female

DRUGS (2)
  1. ESBRIET [Suspect]
     Active Substance: PIRFENIDONE
     Indication: IDIOPATHIC PULMONARY FIBROSIS
     Route: 048
     Dates: start: 20200409, end: 20201215
  2. TADALAFIL 20MG TAB [Suspect]
     Active Substance: TADALAFIL
     Route: 048
     Dates: start: 20201105, end: 20201215

REACTIONS (1)
  - Death [None]

NARRATIVE: CASE EVENT DATE: 20201215
